FAERS Safety Report 16304406 (Version 1)
Quarter: 2019Q2

REPORT INFORMATION
  Report Type: Spontaneous
  Country: US (occurrence: US)
  Receive Date: 20190510
  Receipt Date: 20190510
  Transmission Date: 20190711
  Serious: No
  Sender: FDA-Public Use
  Company Number: None

PATIENT
  Age: 53 Year
  Sex: Female
  Weight: 74.25 kg

DRUGS (1)
  1. EMGALITY [Suspect]
     Active Substance: GALCANEZUMAB-GNLM
     Indication: HEADACHE
     Dosage: ?          QUANTITY:2 INJECTION(S);OTHER ROUTE:INJECTION SUBCUTANEOUS?
     Route: 058
     Dates: start: 20190425, end: 20190509

REACTIONS (6)
  - Seasonal allergy [None]
  - Fatigue [None]
  - Pruritus generalised [None]
  - Eye swelling [None]
  - Migraine [None]
  - Drug hypersensitivity [None]

NARRATIVE: CASE EVENT DATE: 20190501
